FAERS Safety Report 8240138-4 (Version None)
Quarter: 2012Q1

REPORT INFORMATION
  Report Type: 
  Country: None (occurrence: None)
  Receive Date: 20120328
  Receipt Date: 20120319
  Transmission Date: 20120608
  Serious: Yes (Other)
  Sender: FDA-Public Use
  Company Number: US-BAYER-2012-004066

PATIENT
  Age: 33 Year
  Sex: Female
  Weight: 64.399 kg

DRUGS (2)
  1. MIRENA [Suspect]
     Indication: CONTRACEPTION
     Dosage: 20 MCG/24HR, CONT
     Route: 015
     Dates: start: 20110627, end: 20120111
  2. MIRENA [Suspect]
     Indication: MENORRHAGIA
     Dosage: 20 MCG/24HR, CONT
     Route: 015
     Dates: start: 20120101

REACTIONS (3)
  - MENSTRUATION IRREGULAR [None]
  - DEVICE DISLOCATION [None]
  - VAGINAL HAEMORRHAGE [None]
